FAERS Safety Report 22078027 (Version 1)
Quarter: 2023Q1

REPORT INFORMATION
  Report Type: Spontaneous
  Country: US (occurrence: None)
  Receive Date: 20230308
  Receipt Date: 20230308
  Transmission Date: 20230417
  Serious: Yes (unspecified)
  Sender: FDA-Public Use
  Company Number: None

PATIENT
  Age: 45 Year
  Sex: Female
  Weight: 49.5 kg

DRUGS (1)
  1. ARTIFICIAL EYE [Suspect]
     Active Substance: MINERAL OIL\PETROLATUM
     Indication: Lacrimation decreased
     Dosage: OTHER QUANTITY : 36 TUBES;?FREQUENCY : AS NEEDED;?
     Route: 047

REACTIONS (1)
  - Skin exfoliation [None]

NARRATIVE: CASE EVENT DATE: 20221215
